FAERS Safety Report 19059562 (Version 1)
Quarter: 2021Q1

REPORT INFORMATION
  Report Type: Spontaneous
  Country: US (occurrence: US)
  Receive Date: 20210326
  Receipt Date: 20210326
  Transmission Date: 20210420
  Serious: No
  Sender: FDA-Public Use
  Company Number: US-ORGANON-O2103USA001355

PATIENT
  Sex: Male

DRUGS (2)
  1. DULERA [Suspect]
     Active Substance: FORMOTEROL FUMARATE DIHYDRATE\MOMETASONE FUROATE
     Dosage: 100/5 MICROGRAMS (MCG), 2 PUFFS TWICE A DAY
  2. DULERA [Suspect]
     Active Substance: FORMOTEROL FUMARATE DIHYDRATE\MOMETASONE FUROATE
     Dosage: UNK

REACTIONS (5)
  - Wrong technique in product usage process [Unknown]
  - Unevaluable event [Unknown]
  - Device malfunction [Unknown]
  - Product dose omission issue [Unknown]
  - Poor quality device used [Unknown]
